FAERS Safety Report 7127664-6 (Version None)
Quarter: 2010Q4

REPORT INFORMATION
  Report Type: 
  Country: None (occurrence: None)
  Receive Date: 20101130
  Receipt Date: 20101124
  Transmission Date: 20110411
  Serious: Yes (Hospitalization)
  Sender: FDA-Public Use
  Company Number: FR-BIOGENIDEC-2010BI041414

PATIENT
  Age: 46 Year
  Sex: Male

DRUGS (7)
  1. TYSABRI [Suspect]
     Indication: RELAPSING-REMITTING MULTIPLE SCLEROSIS
     Route: 042
     Dates: start: 20090901
  2. ARTANE [Concomitant]
     Indication: TREMOR
  3. LIORESAL [Concomitant]
  4. XATRAL [Concomitant]
  5. ZOLOFT [Concomitant]
  6. FORTRANS [Concomitant]
  7. ARIXTRA [Concomitant]
     Indication: THROMBOSIS PROPHYLAXIS
     Dates: start: 20101101

REACTIONS (1)
  - LUNG ABSCESS [None]
